FAERS Safety Report 21871796 (Version 1)
Quarter: 2023Q1

REPORT INFORMATION
  Report Type: Spontaneous
  Country: JP (occurrence: JP)
  Receive Date: 20230117
  Receipt Date: 20230117
  Transmission Date: 20230418
  Serious: Yes (Hospitalization)
  Sender: FDA-Public Use
  Company Number: JP-DSJP-DSJ-2022-121752

PATIENT
  Age: 50 Year
  Sex: Female

DRUGS (4)
  1. ENHERTU [Suspect]
     Active Substance: FAM-TRASTUZUMAB DERUXTECAN-NXKI
     Indication: HER2 positive breast cancer
     Dosage: 3.7 MG/KG, ONCE EVERY 3 WK
     Route: 041
     Dates: start: 20220311, end: 20220311
  2. ENHERTU [Suspect]
     Active Substance: FAM-TRASTUZUMAB DERUXTECAN-NXKI
     Dosage: UNK UNK, ONCE EVERY 3 WK
     Route: 041
     Dates: start: 2022
  3. BETAMETHASONE SODIUM PHOSPHATE [Suspect]
     Active Substance: BETAMETHASONE SODIUM PHOSPHATE
     Dosage: 4MG/DAY
     Route: 041
     Dates: start: 20220216, end: 20220303
  4. DECADRON [Suspect]
     Active Substance: DEXAMETHASONE
     Dosage: 4MG/DAY
     Route: 048
     Dates: start: 20220304, end: 20220601

REACTIONS (4)
  - Pneumocystis jirovecii pneumonia [Recovered/Resolved]
  - Somnolence [Unknown]
  - Hyponatraemia [Unknown]
  - Underdose [Unknown]

NARRATIVE: CASE EVENT DATE: 20220101
